FAERS Safety Report 8518115-5 (Version None)
Quarter: 2012Q3

REPORT INFORMATION
  Report Type: 
  Country: None (occurrence: None)
  Receive Date: 20120712
  Receipt Date: 20120712
  Transmission Date: 20120928
  Serious: No
  Sender: FDA-Public Use
  Company Number: None

PATIENT
  Age: 27 Year
  Sex: Male
  Weight: 60.95 kg

DRUGS (25)
  1. DIPHENHYDRAMINE HCL [Concomitant]
  2. GABAPENTIN [Concomitant]
  3. LORAZEPAM [Concomitant]
  4. ONDANSETRON [Concomitant]
  5. HYDROCORTISONE 0.05% CREAM [Concomitant]
  6. OXYCODONE HCL [Concomitant]
  7. SENNA-MINT WAF [Concomitant]
  8. FAMOTIDINE [Concomitant]
  9. FERROUS SULFATE TAB [Concomitant]
  10. MULTI-VITAMIN [Concomitant]
  11. NEOMYCIN/POLYMYXIN/BACITRACIN [Concomitant]
  12. DAPTOMYCIN [Suspect]
     Indication: POSTOPERATIVE WOUND INFECTION
     Dosage: 350 MG VIAL DAILY IV
     Route: 042
     Dates: start: 20120612, end: 20120709
  13. CYCLOBENZAPRINE [Concomitant]
  14. SALMETEROL/FLUTICASONE [Concomitant]
  15. ACETAMINOPHEN [Concomitant]
  16. CEPHALEXIN [Concomitant]
  17. HEPARIN [Concomitant]
  18. NYSTATIN [Concomitant]
  19. ASCORBIC ACID [Concomitant]
  20. DOCUSATE SODIUM [Concomitant]
  21. ENOXAPARIN [Concomitant]
  22. MAGNESIUM HYDROXIDE TAB [Concomitant]
  23. ALBUTEROL [Concomitant]
  24. DIBUCAINE [Concomitant]
  25. ZOLPIDEM [Concomitant]

REACTIONS (2)
  - BLOOD CREATINE PHOSPHOKINASE INCREASED [None]
  - LIMB DISCOMFORT [None]
